FAERS Safety Report 17919945 (Version 3)
Quarter: 2021Q1

REPORT INFORMATION
  Report Type: Spontaneous
  Country: US (occurrence: US)
  Receive Date: 20200620
  Receipt Date: 20210328
  Transmission Date: 20210419
  Serious: No
  Sender: FDA-Public Use
  Company Number: US-ASTRAZENECA-2020SE73765

PATIENT
  Age: 24091 Day
  Sex: Male
  Weight: 111.6 kg

DRUGS (1)
  1. BYDUREON BCISE [Suspect]
     Active Substance: EXENATIDE
     Indication: BLOOD GLUCOSE INCREASED
     Route: 058
     Dates: start: 202003

REACTIONS (8)
  - Abdominal distension [Unknown]
  - Blood glucose fluctuation [Unknown]
  - Drug dose omission by device [Unknown]
  - Device issue [Unknown]
  - Weight decreased [Not Recovered/Not Resolved]
  - Injection site pain [Unknown]
  - Dyspepsia [Unknown]
  - Wrong technique in device usage process [Unknown]

NARRATIVE: CASE EVENT DATE: 20200120
